FAERS Safety Report 14897000 (Version 1)
Quarter: 2018Q2

REPORT INFORMATION
  Report Type: Spontaneous
  Country: US (occurrence: US)
  Receive Date: 20180427
  Receipt Date: 20180427
  Transmission Date: 20180711
  Serious: Yes (Disabling)
  Sender: FDA-Public Use
  Company Number: None

PATIENT
  Age: 35 Year
  Sex: Male
  Weight: 87.75 kg

DRUGS (4)
  1. ANASTRAZOLE [Concomitant]
     Active Substance: ANASTROZOLE
  2. ASPERIN [Concomitant]
  3. INVEGA SUSTENNA [Suspect]
     Active Substance: PALIPERIDONE PALMITATE
     Indication: SCHIZOPHRENIA
     Dosage: ?          OTHER FREQUENCY:MONTHLY;?
     Route: 030
  4. KEPHLEX [Concomitant]

REACTIONS (2)
  - Liquid product physical issue [None]
  - Air embolism [None]

NARRATIVE: CASE EVENT DATE: 20180427
